FAERS Safety Report 14071229 (Version 2)
Quarter: 2017Q4

REPORT INFORMATION
  Report Type: Spontaneous
  Country: US (occurrence: US)
  Receive Date: 20171010
  Receipt Date: 20171121
  Transmission Date: 20180321
  Serious: No
  Sender: FDA-Public Use
  Company Number: US-JNJFOC-20170930588

PATIENT
  Age: 61 Year
  Sex: Male

DRUGS (26)
  1. INFLUENZA [Concomitant]
     Active Substance: INFLUENZA VIRUS VACCINE
     Dates: start: 20161014
  2. BENADRYL [Concomitant]
     Active Substance: DIPHENHYDRAMINE HYDROCHLORIDE
     Indication: SLEEP DISORDER
     Dosage: NIGHTLY
     Route: 048
  3. VITAMIN D3 [Concomitant]
     Active Substance: CHOLECALCIFEROL
     Dosage: INHALE 2 PUFFS INTO LUNG EVERY SIX HOURS AS NEEDED
     Route: 048
  4. ZYRTEC [Concomitant]
     Active Substance: CETIRIZINE HYDROCHLORIDE
     Route: 048
  5. SALBUTAMOL [Concomitant]
     Active Substance: ALBUTEROL
     Indication: WHEEZING
     Dosage: INHALE 2 PUFFS INTO LUNG EVERY SIX HOURS AS NEEDED
  6. VENTOLIN HFA [Concomitant]
     Active Substance: ALBUTEROL SULFATE
     Indication: WHEEZING
     Dosage: INHALE 2 PUFFS INTO LUNG EVERY SIX HOURS AS NEEDED
  7. INFLUENZA [Concomitant]
     Active Substance: INFLUENZA VIRUS VACCINE
     Dates: start: 20170918
  8. BENADRYL [Concomitant]
     Active Substance: DIPHENHYDRAMINE HYDROCHLORIDE
     Indication: SLEEP DISORDER
     Dosage: UNK
     Route: 042
  9. ZITHROMAX [Concomitant]
     Active Substance: AZITHROMYCIN DIHYDRATE
     Dosage: TAKE 2 TAB NOW THEN TAKE 1 TABLET DAILY FOR 4 DAYS
  10. LEVAQUIN [Concomitant]
     Active Substance: LEVOFLOXACIN
     Indication: HYPERSENSITIVITY
     Route: 048
  11. IMBRUVICA [Suspect]
     Active Substance: IBRUTINIB
     Indication: CHRONIC LYMPHOCYTIC LEUKAEMIA
     Route: 048
     Dates: start: 201709
  12. DICLOFENAC [Concomitant]
     Active Substance: DICLOFENAC
     Route: 065
  13. RITUXAN [Concomitant]
     Active Substance: RITUXIMAB
     Dosage: UNK
  14. ALBUTEROL. [Concomitant]
     Active Substance: ALBUTEROL
     Indication: WHEEZING
     Dosage: (90 MCG), INHALE 2 PUFFS INTO LUNG EVERY SIX HOURS AS NEEDED
  15. ATIVAN [Concomitant]
     Active Substance: LORAZEPAM
     Dosage: UNK
     Route: 048
  16. TROXERUTIN [Concomitant]
     Active Substance: TROXERUTIN
  17. RITUXAN [Concomitant]
     Active Substance: RITUXIMAB
     Dosage: INTO THE VEIN EVERY Q4 DAY
     Route: 042
  18. NASALCROM [Concomitant]
     Active Substance: CROMOLYN SODIUM
     Indication: HYPERSENSITIVITY
     Dosage: USE 1 SPRAY IN EACH NOSTRIL EVERY FOUR HOURS AS NEEDED
     Route: 048
  19. MORPHINE [Concomitant]
     Active Substance: MORPHINE
     Dosage: 5 ML (10 MG) AS DIRECTED
     Route: 048
  20. TYLENOL [Concomitant]
     Active Substance: ACETAMINOPHEN
     Indication: PAIN
     Dosage: EVERY 6 HOURS AS NEEDED
     Route: 048
  21. FLONASE [Concomitant]
     Active Substance: FLUTICASONE PROPIONATE
     Dosage: (50 MCG), USE 2 SPRAYS IN EACH NOSTRIL DAILY. RINSE MOUTH AFTER EACH USE
  22. TYLENOL [Concomitant]
     Active Substance: ACETAMINOPHEN
     Indication: PAIN
     Dosage: UNK
     Route: 048
  23. VITAMIN B COMPLEX [Concomitant]
     Active Substance: CYANOCOBALAMIN\DEXPANTHENOL\NIACINAMIDE\PYRIDOXINE HYDROCHLORIDE\RIBOFLAVIN 5^-PHOSPHATE SODIUM\THIAMINE HYDROCHLORIDE\VITAMIN B COMPLEX
     Route: 048
  24. IMBRUVICA [Suspect]
     Active Substance: IBRUTINIB
     Indication: CHRONIC LYMPHOCYTIC LEUKAEMIA
     Route: 048
     Dates: start: 20161130, end: 201709
  25. ZOVIRAX [Concomitant]
     Active Substance: ACYCLOVIR
     Route: 048
  26. HYDROCORTISONE SODIUM SUCCINATE [Concomitant]
     Active Substance: HYDROCORTISONE SODIUM SUCCINATE
     Dosage: 2 ML (100MG TOTAL)
     Route: 042

REACTIONS (2)
  - Pyrexia [Not Recovered/Not Resolved]
  - Anaemia [Not Recovered/Not Resolved]

NARRATIVE: CASE EVENT DATE: 20170419
